FAERS Safety Report 19905336 (Version 1)
Quarter: 2021Q4

REPORT INFORMATION
  Report Type: Spontaneous
  Country: FI (occurrence: FI)
  Receive Date: 20211001
  Receipt Date: 20211001
  Transmission Date: 20220303
  Serious: Yes (Other)
  Sender: FDA-Public Use
  Company Number: 2021A744858

PATIENT
  Age: 22 Year
  Sex: Female

DRUGS (1)
  1. QUETIAPINE FUMARATE [Suspect]
     Active Substance: QUETIAPINE FUMARATE
     Indication: Insomnia
     Route: 048
     Dates: start: 2015, end: 2015

REACTIONS (7)
  - Weight increased [Recovered/Resolved]
  - Delusion [Recovered/Resolved]
  - Hallucination, auditory [Recovered/Resolved]
  - Food craving [Recovered/Resolved]
  - Aggression [Recovered/Resolved]
  - Depressed level of consciousness [Recovered/Resolved]
  - Hallucination, visual [Recovered/Resolved]

NARRATIVE: CASE EVENT DATE: 20150101
